FAERS Safety Report 12735468 (Version 1)
Quarter: 2016Q3

REPORT INFORMATION
  Report Type: Spontaneous
  Country: CH (occurrence: CH)
  Receive Date: 20160912
  Receipt Date: 20160912
  Transmission Date: 20161109
  Serious: Yes (Congenital Anomaly)
  Sender: FDA-Public Use
  Company Number: CH-PFIZER INC-2016422698

PATIENT
  Age: 12 Month
  Sex: Male
  Weight: 3.44 kg

DRUGS (2)
  1. OMEPRAZOLE. [Suspect]
     Active Substance: OMEPRAZOLE
     Dosage: 20 MG, QD
     Route: 064
     Dates: start: 20150203, end: 20150914
  2. PANTOPRAZOLE [Suspect]
     Active Substance: PANTOPRAZOLE SODIUM
     Dosage: 20 MG, QD
     Route: 064
     Dates: end: 20150202

REACTIONS (4)
  - Limb malformation [Not Recovered/Not Resolved]
  - Limb reduction defect [Not Recovered/Not Resolved]
  - Maternal exposure during pregnancy [Not Recovered/Not Resolved]
  - Congenital hand malformation [Not Recovered/Not Resolved]

NARRATIVE: CASE EVENT DATE: 20150203
